FAERS Safety Report 11838540 (Version 1)
Quarter: 2015Q4

REPORT INFORMATION
  Report Type: Spontaneous
  Country: US (occurrence: US)
  Receive Date: 20151215
  Receipt Date: 20151215
  Transmission Date: 20160305
  Serious: Yes (Hospitalization, Other)
  Sender: FDA-Public Use
  Company Number: US-GLAXOSMITHKLINE-US2015176291

PATIENT
  Sex: Female

DRUGS (10)
  1. BREO ELLIPTA [Suspect]
     Active Substance: FLUTICASONE FUROATE\VILANTEROL TRIFENATATE
     Indication: CHRONIC OBSTRUCTIVE PULMONARY DISEASE
     Dosage: 1 PUFF(S), QD
     Route: 055
     Dates: start: 2015
  2. NEBULIZED ALBUTEROL [Concomitant]
     Active Substance: ALBUTEROL
  3. ARNUITY ELLIPTA [Suspect]
     Active Substance: FLUTICASONE FUROATE
     Indication: CHRONIC OBSTRUCTIVE PULMONARY DISEASE
     Dosage: 1 PUFF(S), QD
     Route: 055
     Dates: start: 2015
  4. ZOLPIDEM [Concomitant]
     Active Substance: ZOLPIDEM\ZOLPIDEM TARTRATE
  5. ADVAIR DISKUS [Suspect]
     Active Substance: FLUTICASONE PROPIONATE\SALMETEROL XINAFOATE
     Indication: CHRONIC OBSTRUCTIVE PULMONARY DISEASE
     Dosage: 1 PUFF(S), QD
     Route: 055
     Dates: start: 2001, end: 2014
  6. SPIRIVA [Suspect]
     Active Substance: TIOTROPIUM BROMIDE MONOHYDRATE
     Indication: DYSPNOEA
     Dosage: UNK
     Route: 055
  7. SPIRIVA [Suspect]
     Active Substance: TIOTROPIUM BROMIDE MONOHYDRATE
  8. PREDNISONE. [Suspect]
     Active Substance: PREDNISONE
     Indication: INFECTION
  9. PROAIR HFA [Suspect]
     Active Substance: ALBUTEROL SULFATE
     Indication: CHRONIC OBSTRUCTIVE PULMONARY DISEASE
     Route: 055
  10. ADVAIR DISKUS [Suspect]
     Active Substance: FLUTICASONE PROPIONATE\SALMETEROL XINAFOATE
     Dosage: 1 PUFF(S), BID
     Route: 055
     Dates: start: 2001, end: 2014

REACTIONS (16)
  - Colon cancer [Recovered/Resolved]
  - Ocular discomfort [Unknown]
  - Device use error [Unknown]
  - Glaucoma [Recovered/Resolved]
  - Pancreatic neuroendocrine tumour [Recovered/Resolved]
  - Back pain [Not Recovered/Not Resolved]
  - Lymphadenopathy [Not Recovered/Not Resolved]
  - Cataract [Recovered/Resolved]
  - Overdose [Unknown]
  - Abasia [Recovering/Resolving]
  - Rectal haemorrhage [Recovered/Resolved]
  - Photopsia [Unknown]
  - Colectomy [Recovered/Resolved]
  - Blindness [Unknown]
  - Inflammation [Not Recovered/Not Resolved]
  - Underdose [Unknown]

NARRATIVE: CASE EVENT DATE: 2008
